FAERS Safety Report 9355254 (Version 1)
Quarter: 2013Q2

REPORT INFORMATION
  Report Type: Spontaneous
  Country: US (occurrence: US)
  Receive Date: 20130619
  Receipt Date: 20130619
  Transmission Date: 20140414
  Serious: No
  Sender: FDA-Public Use
  Company Number: US-PFIZER INC-2013180479

PATIENT
  Age: 70 Year
  Sex: Female
  Weight: 74.83 kg

DRUGS (5)
  1. NORVASC [Suspect]
     Dosage: UNK
  2. CODEINE [Suspect]
     Dosage: UNK
  3. DARVOCET [Suspect]
     Dosage: UNK
  4. VICODIN [Suspect]
     Dosage: UNK
  5. FLUVASTATIN [Suspect]
     Dosage: UNK

REACTIONS (1)
  - Drug hypersensitivity [Unknown]
